FAERS Safety Report 25709108 (Version 3)
Quarter: 2025Q4

REPORT INFORMATION
  Report Type: Report from Study
  Country: US (occurrence: US)
  Receive Date: 20250821
  Receipt Date: 20251010
  Transmission Date: 20260118
  Serious: Yes (Other)
  Sender: CSL BEHRING
  Company Number: US-BEH-2025216066

PATIENT
  Age: 57 Year
  Sex: Female
  Weight: 56.689 kg

DRUGS (1)
  1. ZEMAIRA [Suspect]
     Active Substance: .ALPHA.1-PROTEINASE INHIBITOR HUMAN
     Indication: Alpha-1 antitrypsin deficiency
     Dosage: UNK, QW
     Route: 042

REACTIONS (5)
  - Arthralgia [Unknown]
  - Abdominal discomfort [Unknown]
  - Myofascial pain syndrome [Unknown]
  - Muscle spasms [Unknown]
  - Headache [Unknown]
